FAERS Safety Report 4647056-9 (Version None)
Quarter: 2005Q2

REPORT INFORMATION
  Report Type: 
  Country: None (occurrence: None)
  Receive Date: 20050331
  Receipt Date: 20050214
  Transmission Date: 20051028
  Serious: No
  Sender: FDA-Public Use
  Company Number: 03P-163-0220701-00

PATIENT
  Age: 58 Year
  Sex: Male
  Weight: 120.5 kg

DRUGS (6)
  1. HUMIRA [Suspect]
     Indication: RHEUMATOID ARTHRITIS
     Dosage: 40 MG, 1 IN 2 WK, SUBCUTANEOUS;  40 MG, 1 IN 1 WK, SUBCUTANEOUS
     Route: 058
     Dates: start: 20030501, end: 20040101
  2. HUMIRA [Suspect]
     Indication: RHEUMATOID ARTHRITIS
     Dosage: 40 MG, 1 IN 2 WK, SUBCUTANEOUS;  40 MG, 1 IN 1 WK, SUBCUTANEOUS
     Route: 058
     Dates: start: 20040101
  3. ATENOLOL [Concomitant]
  4. ALLOPURINOL [Concomitant]
  5. LEFLUNOMIDE [Concomitant]
  6. PARACETAMOL [Concomitant]

REACTIONS (3)
  - BLOOD GLUCOSE INCREASED [None]
  - INJECTION SITE IRRITATION [None]
  - INJECTION SITE PAIN [None]
